FAERS Safety Report 5880143-6 (Version None)
Quarter: 2008Q3

REPORT INFORMATION
  Report Type: 
  Country: None (occurrence: None)
  Receive Date: 20080912
  Receipt Date: 20080831
  Transmission Date: 20090109
  Serious: Yes (Other)
  Sender: FDA-Public Use
  Company Number: US-PFIZER INC-2008073785

PATIENT
  Sex: Male

DRUGS (2)
  1. CHANTIX [Suspect]
     Indication: SMOKING CESSATION THERAPY
     Route: 048
     Dates: start: 20080722, end: 20080815
  2. ETHANOL [Suspect]
     Dates: start: 20080830

REACTIONS (2)
  - LOSS OF CONSCIOUSNESS [None]
  - STOMACH DISCOMFORT [None]
